FAERS Safety Report 18427790 (Version 2)
Quarter: 2020Q4

REPORT INFORMATION
  Report Type: Spontaneous
  Country: GB (occurrence: GB)
  Receive Date: 20201026
  Receipt Date: 20201110
  Transmission Date: 20210114
  Serious: Yes (Hospitalization)
  Sender: FDA-Public Use
  Company Number: GB-VERTEX PHARMACEUTICALS-2020-020739

PATIENT
  Age: 25 Year
  Sex: Female

DRUGS (11)
  1. KAFTRIO [Suspect]
     Active Substance: ELEXACAFTOR\IVACAFTOR\TEZACAFTOR
     Indication: CYSTIC FIBROSIS
     Dosage: 2 TABLETS (75MG / 50MG / 100MG) AM
     Route: 048
     Dates: start: 20201002, end: 202010
  2. KALYDECO [Interacting]
     Active Substance: IVACAFTOR
     Indication: CYSTIC FIBROSIS
     Dosage: 150MG, PM
     Route: 048
     Dates: start: 20201002, end: 202010
  3. FLUOXETINE [Interacting]
     Active Substance: FLUOXETINE HYDROCHLORIDE
     Indication: PRODUCT USED FOR UNKNOWN INDICATION
     Route: 065
  4. NOVORAPID [Concomitant]
     Active Substance: INSULIN ASPART
  5. OMEPRAZOLE. [Concomitant]
     Active Substance: OMEPRAZOLE
  6. ADCAL D3 [Concomitant]
     Active Substance: CALCIUM CARBONATE\CHOLECALCIFEROL
  7. DESLORATADINE. [Concomitant]
     Active Substance: DESLORATADINE
  8. CHOLECALCIFEROL [Concomitant]
     Active Substance: CHOLECALCIFEROL
  9. DORNASE ALFA. [Concomitant]
     Active Substance: DORNASE ALFA
  10. MENADIOL [Concomitant]
     Active Substance: MENADIOL
  11. CREON [Concomitant]
     Active Substance: PANCRELIPASE AMYLASE\PANCRELIPASE LIPASE\PANCRELIPASE PROTEASE

REACTIONS (3)
  - Mania [Recovered/Resolved]
  - Paranoia [Unknown]
  - Drug interaction [Unknown]

NARRATIVE: CASE EVENT DATE: 202010
